FAERS Safety Report 15687283 (Version 4)
Quarter: 2019Q1

REPORT INFORMATION
  Report Type: Report from Study
  Country: None (occurrence: NL)
  Receive Date: 20181205
  Receipt Date: 20190128
  Transmission Date: 20190417
  Serious: Yes (Death, Hospitalization)
  Sender: FDA-Public Use
  Company Number: NL-ABBVIE-18S-114-2575029-00

PATIENT
  Age: 68 Year
  Sex: Male

DRUGS (1)
  1. DUODOPA [Suspect]
     Active Substance: CARBIDOPA\LEVODOPA
     Indication: PARKINSON^S DISEASE
     Route: 050
     Dates: start: 20080923

REACTIONS (7)
  - Pneumonia [Fatal]
  - Gastric disorder [Fatal]
  - Cystitis [Fatal]
  - Parkinson^s disease [Fatal]
  - Functional gastrointestinal disorder [Not Recovered/Not Resolved]
  - Ileus [Not Recovered/Not Resolved]
  - Intestinal obstruction [Fatal]

NARRATIVE: CASE EVENT DATE: 201812
